FAERS Safety Report 6065654-5 (Version None)
Quarter: 2009Q1

REPORT INFORMATION
  Report Type: 
  Country: None (occurrence: None)
  Receive Date: 20090130
  Receipt Date: 20090120
  Transmission Date: 20090719
  Serious: Yes (Hospitalization)
  Sender: FDA-Public Use
  Company Number: CIP09000161

PATIENT
  Age: 66 Year
  Sex: Female

DRUGS (4)
  1. BENET        (RISEDRONATE SODIUM) [Suspect]
     Indication: OSTEOPOROSIS
     Dosage: 17.5MG ONCE WEEKLY, ORAL
     Route: 048
     Dates: start: 20080828, end: 20081027
  2. BENET         (RISEDRONATE SODIUM) [Suspect]
     Indication: OSTEOPOROSIS
     Dosage: 2.5 MG ONCE DAILY, ORAL
     Route: 048
     Dates: start: 20080407, end: 20080505
  3. FOSAMAX [Suspect]
     Indication: OSTEOPOROSIS
     Dosage: 35 MG ONCE WEEKLY, ORAL
     Route: 048
     Dates: start: 20080512, end: 20080701
  4. ROCALTROL [Concomitant]

REACTIONS (1)
  - HYPERKALAEMIA [None]
